FAERS Safety Report 9264282 (Version 2)
Quarter: 2013Q4

REPORT INFORMATION
  Report Type: Spontaneous
  Country: JP (occurrence: JP)
  Receive Date: 20130430
  Receipt Date: 20131115
  Transmission Date: 20140711
  Serious: Yes (Death)
  Sender: FDA-Public Use
  Company Number: JP-ASTRAZENECA-2013SE28932

PATIENT
  Age: 55 Year
  Sex: Male

DRUGS (7)
  1. DIPRIVAN KIT [Suspect]
     Indication: INDUCTION AND MAINTENANCE OF ANAESTHESIA
     Route: 042
  2. DIPRIVAN KIT [Suspect]
     Indication: INDUCTION AND MAINTENANCE OF ANAESTHESIA
     Route: 042
  3. ROCURONIUM BROMIDE [Concomitant]
     Indication: INDUCTION OF ANAESTHESIA
     Route: 042
  4. REMIFENTANIL HYDROCHLORIDE [Concomitant]
     Indication: INDUCTION AND MAINTENANCE OF ANAESTHESIA
     Dosage: 0.25 MCG/KG/MIN
     Route: 042
  5. SUGAMMADEX SODIUM [Concomitant]
     Route: 042
  6. FOSPHENYTOIN SODIUM HYDRATE [Concomitant]
     Indication: EPILEPSY
     Route: 042
  7. FENTANYL [Concomitant]
     Indication: MAINTENANCE OF ANAESTHESIA
     Route: 042

REACTIONS (4)
  - Intracranial venous sinus thrombosis [Fatal]
  - Delayed recovery from anaesthesia [Fatal]
  - Brain oedema [Fatal]
  - Hypoxic-ischaemic encephalopathy [Fatal]
